FAERS Safety Report 24423305 (Version 1)
Quarter: 2024Q4

REPORT INFORMATION
  Report Type: Spontaneous
  Country: CN (occurrence: CN)
  Receive Date: 20241010
  Receipt Date: 20241010
  Transmission Date: 20250114
  Serious: Yes (Other)
  Sender: BAXTER
  Company Number: None

PATIENT
  Age: 52 Year
  Sex: Female
  Weight: 55 kg

DRUGS (1)
  1. MANNITOL [Suspect]
     Active Substance: MANNITOL
     Indication: Post procedural swelling
     Dosage: 250 ML, ONCE DAILY (DOSAGE FORM: INJECTION SOLUTION)
     Route: 041
     Dates: start: 20240923, end: 20240923

REACTIONS (3)
  - Heart rate increased [Recovering/Resolving]
  - Chills [Recovering/Resolving]
  - Hypertension [Recovering/Resolving]

NARRATIVE: CASE EVENT DATE: 20240923
